FAERS Safety Report 24739625 (Version 2)
Quarter: 2025Q1

REPORT INFORMATION
  Report Type: Spontaneous
  Country: US (occurrence: US)
  Receive Date: 20241216
  Receipt Date: 20250115
  Transmission Date: 20250408
  Serious: No
  Sender: SANOFI AVENTIS
  Company Number: US-SA-2024SA368949

PATIENT
  Age: 28 Year
  Sex: Female
  Weight: 65.45 kg

DRUGS (9)
  1. DUPIXENT [Suspect]
     Active Substance: DUPILUMAB
     Indication: Dermatitis allergic
     Dosage: 300 MG, QOW
     Route: 058
  2. DUPIXENT [Suspect]
     Active Substance: DUPILUMAB
     Indication: Neurodermatitis
  3. WAKIX [Concomitant]
     Active Substance: PITOLISANT HYDROCHLORIDE
  4. AUVELITY [Concomitant]
     Active Substance: BUPROPION HYDROCHLORIDE\DEXTROMETHORPHAN HYDROBROMIDE
  5. SUNOSI [Concomitant]
     Active Substance: SOLRIAMFETOL
  6. CAPLYTA [Concomitant]
     Active Substance: LUMATEPERONE
  7. MODAFINIL [Concomitant]
     Active Substance: MODAFINIL
  8. FLUDROCORTISONE [FLUDROCORTISONE ACETATE] [Concomitant]
  9. MODAFINIL [Concomitant]
     Active Substance: MODAFINIL

REACTIONS (6)
  - Foreign body sensation in eyes [Unknown]
  - Fatigue [Unknown]
  - Stress [Unknown]
  - Poor quality sleep [Unknown]
  - Sleep disorder due to a general medical condition [Not Recovered/Not Resolved]
  - Dry eye [Not Recovered/Not Resolved]

NARRATIVE: CASE EVENT DATE: 20240101
